FAERS Safety Report 5812095-9 (Version None)
Quarter: 2008Q3

REPORT INFORMATION
  Report Type: 
  Country: None (occurrence: None)
  Receive Date: 20080716
  Receipt Date: 20080627
  Transmission Date: 20090109
  Serious: No
  Sender: FDA-Public Use
  Company Number: US-BOEHRINGER INGELHEIM GMBH, GERMANY-2008-BP-10311BP

PATIENT
  Sex: Male

DRUGS (3)
  1. SPIRIVA [Suspect]
     Indication: CHRONIC OBSTRUCTIVE PULMONARY DISEASE
     Dates: start: 20080101
  2. ALBUTEROL SULFATE [Concomitant]
     Indication: DYSPNOEA
  3. SEREVENT [Concomitant]
     Indication: DYSPNOEA

REACTIONS (2)
  - BENIGN PROSTATIC HYPERPLASIA [None]
  - URINARY RETENTION [None]
